FAERS Safety Report 5253543-5 (Version None)
Quarter: 2007Q1

REPORT INFORMATION
  Report Type: 
  Country: None (occurrence: None)
  Receive Date: 20061201
  Receipt Date: 20060826
  Transmission Date: 20070707
  Serious: No
  Sender: FDA-Public Use
  Company Number: 2006PV020241

PATIENT
  Age: 73 Year
  Sex: Male
  Weight: 66.6788 kg

DRUGS (8)
  1. BYETTA [Suspect]
     Indication: DIABETES MELLITUS NON-INSULIN-DEPENDENT
     Dosage: SEE IMAGE
     Route: 058
     Dates: start: 20060401, end: 20060501
  2. BYETTA [Suspect]
     Indication: DIABETES MELLITUS NON-INSULIN-DEPENDENT
     Dosage: SEE IMAGE
     Route: 058
     Dates: start: 20060501
  3. LANTUS [Suspect]
     Dosage: 33 UNITS;HS
     Dates: start: 20060801
  4. METFORMIN HCL [Concomitant]
  5. AVANDIA [Concomitant]
  6. ALTACE [Concomitant]
  7. SEROQUEL [Concomitant]
  8. BETA BLOCKER [Concomitant]

REACTIONS (3)
  - BLOOD GLUCOSE DECREASED [None]
  - BLOOD GLUCOSE INCREASED [None]
  - INJECTION SITE HAEMORRHAGE [None]
